FAERS Safety Report 5736756-5 (Version None)
Quarter: 2008Q2

REPORT INFORMATION
  Report Type: 
  Country: None (occurrence: None)
  Receive Date: 20080513
  Receipt Date: 20080505
  Transmission Date: 20081010
  Serious: Yes (Other)
  Sender: FDA-Public Use
  Company Number: JM-BOEHRINGER INGELHEIM GMBH, GERMANY-2008-BP-07169RO

PATIENT
  Age: 25 Year
  Sex: Female

DRUGS (4)
  1. LITHIUM CARBONATE [Suspect]
     Indication: BIPOLAR DISORDER
  2. HALDOL [Suspect]
     Indication: BIPOLAR DISORDER
  3. COGENTIN [Suspect]
     Indication: BIPOLAR DISORDER
  4. MULTI-VITAMINS [Concomitant]
     Indication: VITAMIN SUPPLEMENTATION

REACTIONS (6)
  - ABNORMAL LABOUR [None]
  - BLOOD PRESSURE INCREASED [None]
  - LABORATORY TEST ABNORMAL [None]
  - PLACENTAL DISORDER [None]
  - SMALL FOR DATES BABY [None]
  - WEIGHT DECREASED [None]
